FAERS Safety Report 10023188 (Version 1)
Quarter: 2014Q1

REPORT INFORMATION
  Report Type: Report from Study
  Country: US (occurrence: US)
  Receive Date: 20140320
  Receipt Date: 20140320
  Transmission Date: 20141002
  Serious: Yes (Other)
  Sender: FDA-Public Use
  Company Number: US-BIOGENIDEC-2014BI024755

PATIENT
  Age: 33 Year
  Sex: Female
  Weight: 59 kg

DRUGS (3)
  1. TYSABRI [Suspect]
     Indication: MULTIPLE SCLEROSIS
     Route: 042
     Dates: start: 20090312, end: 20120726
  2. ATIVAN [Concomitant]
     Indication: ANXIETY
     Route: 048
  3. IMITREX [Concomitant]
     Indication: HEADACHE
     Route: 048

REACTIONS (1)
  - Abortion spontaneous [Recovered/Resolved]
